FAERS Safety Report 5267602-4 (Version None)
Quarter: 2007Q1

REPORT INFORMATION
  Report Type: 
  Country: None (occurrence: None)
  Receive Date: 20070316
  Receipt Date: 20070308
  Transmission Date: 20070707
  Serious: No
  Sender: FDA-Public Use
  Company Number: US-BAXTER-2007BH002185

PATIENT
  Age: 51 Year
  Sex: Female

DRUGS (2)
  1. FLEXBUMIN 25% [Suspect]
     Indication: IMMUNODEFICIENCY COMMON VARIABLE
     Route: 042
     Dates: start: 20070212, end: 20070212
  2. FLEBOGAMMA [Concomitant]
     Indication: IMMUNODEFICIENCY COMMON VARIABLE
     Route: 042
     Dates: start: 20070212, end: 20070212

REACTIONS (3)
  - PRURITUS [None]
  - THROAT TIGHTNESS [None]
  - URTICARIA [None]
